FAERS Safety Report 7788647-6 (Version None)
Quarter: 2011Q3

REPORT INFORMATION
  Report Type: 
  Country: None (occurrence: None)
  Receive Date: 20110930
  Receipt Date: 20110920
  Transmission Date: 20111222
  Serious: Yes (Other)
  Sender: FDA-Public Use
  Company Number: JP-BRISTOL-MYERS SQUIBB COMPANY-16107856

PATIENT
  Age: 1 Day
  Sex: Male
  Weight: 2 kg

DRUGS (3)
  1. ABILIFY [Suspect]
     Dosage: ABILIFY TAB 3MG. 6MG:8-28DEC2008 3MG:29DEC2008-UNK
     Route: 064
     Dates: start: 20081208
  2. ALOSENN [Concomitant]
     Dosage: GRANULES
     Dates: start: 20081202
  3. RITODRINE HYDROCHLORIDE [Concomitant]
     Dosage: TABS
     Dates: start: 20081122, end: 20090112

REACTIONS (1)
  - SMALL FOR DATES BABY [None]
